FAERS Safety Report 13948707 (Version 1)
Quarter: 2017Q3

REPORT INFORMATION
  Report Type: Spontaneous
  Country: US (occurrence: US)
  Receive Date: 20170908
  Receipt Date: 20170908
  Transmission Date: 20171128
  Serious: Yes (Life-Threatening, Hospitalization, Other)
  Sender: FDA-Public Use
  Company Number: US-WEST-WARD PHARMACEUTICALS CORP.-US-H14001-17-03316

PATIENT
  Age: 54 Year
  Sex: Male

DRUGS (1)
  1. SODIUM CHLORIDE. [Suspect]
     Active Substance: SODIUM CHLORIDE
     Indication: BRONCHIAL HAEMORRHAGE
     Dosage: 60 CC OF COLD SALINE
     Route: 065

REACTIONS (1)
  - Atrioventricular block complete [Recovered/Resolved]
